FAERS Safety Report 5118467-2 (Version None)
Quarter: 2006Q3

REPORT INFORMATION
  Report Type: 
  Country: None (occurrence: None)
  Receive Date: 20060926
  Receipt Date: 20060915
  Transmission Date: 20061208
  Serious: Yes (Death, Hospitalization)
  Sender: FDA-Public Use
  Company Number: 2006-02387

PATIENT
  Age: 68 Year
  Sex: Male
  Weight: 42 kg

DRUGS (4)
  1. VELCADE [Suspect]
     Indication: LUNG SQUAMOUS CELL CARCINOMA STAGE UNSPECIFIED
     Dosage: 1.60 MG/M2, IV BOLUS
     Route: 040
     Dates: start: 20060724, end: 20060807
  2. TAXOTERE [Suspect]
     Indication: LUNG SQUAMOUS CELL CARCINOMA STAGE UNSPECIFIED
     Dosage: 30.00 MG/M2, INTRAVENOUS
     Route: 042
     Dates: start: 20060724, end: 20060807
  3. MARINOL [Concomitant]
  4. PERCOCET-5 (OXYCODONE TEREPHTHALTE, ACETYLSALICYLIC ACID, OXUCODONE HY [Concomitant]

REACTIONS (3)
  - ANOREXIA [None]
  - DEHYDRATION [None]
  - LEUKOCYTOSIS [None]
